FAERS Safety Report 5583823-5 (Version None)
Quarter: 2008Q1

REPORT INFORMATION
  Report Type: 
  Country: None (occurrence: None)
  Receive Date: 20080103
  Receipt Date: 20080103
  Transmission Date: 20080703
  Serious: No
  Sender: FDA-Public Use
  Company Number: None

PATIENT
  Age: 50 Year
  Sex: Male
  Weight: 97.0698 kg

DRUGS (1)
  1. FELODIPINE [Suspect]
     Indication: HYPERTENSION
     Dosage: 10 MG ONCE A DAY PO
     Route: 048
     Dates: start: 20071115, end: 20071231

REACTIONS (4)
  - HEADACHE [None]
  - OEDEMA PERIPHERAL [None]
  - SINUSITIS [None]
  - SWELLING FACE [None]
